FAERS Safety Report 10197872 (Version 1)
Quarter: 2014Q2

REPORT INFORMATION
  Report Type: Spontaneous
  Country: US (occurrence: None)
  Receive Date: 20140523
  Receipt Date: 20140523
  Transmission Date: 20141212
  Serious: Yes (Life-Threatening, Hospitalization, Disabling)
  Sender: FDA-Public Use
  Company Number: None

PATIENT
  Age: 67 Year
  Sex: Male
  Weight: 135.63 kg

DRUGS (18)
  1. HCTZ 12.5/ LISINOPRIL 20 MG TAB [Suspect]
     Indication: BLOOD PRESSURE
     Route: 048
     Dates: start: 20051003, end: 20140502
  2. ACARBOSE [Concomitant]
  3. GABAPENTIN [Concomitant]
  4. MELOXICAM [Concomitant]
  5. METOPROLOL TARTRATE [Concomitant]
  6. OMEPRAZOLE [Concomitant]
  7. SIMVASTATIN [Concomitant]
  8. TRAMADOL HCL [Concomitant]
  9. HYDROCHLOROTHIAZIDE [Concomitant]
  10. INSULIN NOVOLIN [Concomitant]
  11. CAMPHOR [Concomitant]
  12. MENTHOL LOTION [Concomitant]
  13. SILVER SULFADIAZINE CREAM [Concomitant]
  14. TRIAMCINOLONE ACETONIDE [Concomitant]
  15. ASPIRIN [Concomitant]
  16. FISH OIL [Concomitant]
  17. MULTI COMPLETE W/ IRON W/ D3 [Concomitant]
  18. D3-1000 [Concomitant]

REACTIONS (4)
  - Pharyngeal oedema [None]
  - Infection [None]
  - Angioedema [None]
  - Oropharyngeal pain [None]
